FAERS Safety Report 6543770-9 (Version None)
Quarter: 2010Q1

REPORT INFORMATION
  Report Type: 
  Country: None (occurrence: None)
  Receive Date: 20100120
  Receipt Date: 20090804
  Transmission Date: 20100710
  Serious: No
  Sender: FDA-Public Use
  Company Number: US-BRISTOL-MYERS SQUIBB COMPANY-14727937

PATIENT
  Age: 70 Year
  Sex: Female
  Weight: 53 kg

DRUGS (3)
  1. TRAZODONE HCL [Suspect]
     Indication: INSOMNIA
     Dosage: 1 DF = 50MG-100MG OR 100MG-150MG
  2. SYNTHROID [Concomitant]
  3. WELLBUTRIN [Concomitant]

REACTIONS (1)
  - RED BLOOD CELL COUNT DECREASED [None]
